FAERS Safety Report 9142894 (Version 1)
Quarter: 2013Q1

REPORT INFORMATION
  Report Type: Spontaneous
  Country: US (occurrence: US)
  Receive Date: 20130306
  Receipt Date: 20130306
  Transmission Date: 20140127
  Serious: No
  Sender: FDA-Public Use
  Company Number: US-PFIZER INC-2013073163

PATIENT
  Age: 68 Year
  Sex: Female

DRUGS (6)
  1. DETROL LA [Suspect]
     Dosage: 2 MG, 1X/DAY
     Route: 048
     Dates: start: 20130127, end: 20130130
  2. PERCOCET [Concomitant]
     Dosage: 5/325 MG, 2X/DAY
  3. ZOCOR [Concomitant]
     Dosage: 60 MG, 1X/DAY
  4. OMEPRAZOLE [Concomitant]
     Dosage: 40 MG, 1X/DAY
  5. LEXAPRO [Concomitant]
     Dosage: 10 MG, 1X/DAY
  6. AVAPRO [Concomitant]
     Dosage: 300 MG, 1X/DAY

REACTIONS (1)
  - Arthralgia [Recovered/Resolved]
